FAERS Safety Report 5881978-6 (Version None)
Quarter: 2008Q3

REPORT INFORMATION
  Report Type: 
  Country: None (occurrence: None)
  Receive Date: 20080912
  Receipt Date: 20080721
  Transmission Date: 20090109
  Serious: No
  Sender: FDA-Public Use
  Company Number: US-ABBOTT-08P-163-0464313-00

PATIENT
  Sex: Female

DRUGS (2)
  1. HUMIRA [Suspect]
     Indication: PSORIASIS
     Route: 058
     Dates: start: 20080630, end: 20080630
  2. HUMIRA [Suspect]
     Dates: start: 20080706

REACTIONS (3)
  - DRY SKIN [None]
  - PSORIASIS [None]
  - RASH MACULAR [None]
